FAERS Safety Report 5176529-8 (Version None)
Quarter: 2006Q4

REPORT INFORMATION
  Report Type: 
  Country: None (occurrence: None)
  Receive Date: 20061207
  Receipt Date: 20061127
  Transmission Date: 20070319
  Serious: Yes (Other)
  Sender: FDA-Public Use
  Company Number: 2006US002664

PATIENT
  Age: 34 Year
  Sex: Male

DRUGS (2)
  1. AMEVIVE [Suspect]
     Indication: PSORIASIS
     Dosage: 15 MG, WEEKLY, INTRAMUSCULAR; SEE IMAGE
     Route: 030
     Dates: start: 20050314
  2. AMEVIVE [Suspect]
     Indication: PSORIASIS
     Dosage: 15 MG, WEEKLY, INTRAMUSCULAR; SEE IMAGE
     Route: 030
     Dates: start: 20060710

REACTIONS (2)
  - EPIDIDYMITIS [None]
  - FATIGUE [None]
